FAERS Safety Report 16788881 (Version 2)
Quarter: 2020Q3

REPORT INFORMATION
  Report Type: Spontaneous
  Country: US (occurrence: US)
  Receive Date: 20190910
  Receipt Date: 20200901
  Transmission Date: 20201102
  Serious: Yes (Hospitalization, Other)
  Sender: FDA-Public Use
  Company Number: US-SUN PHARMACEUTICAL INDUSTRIES LTD-2019R1-219106

PATIENT
  Age: 22 Year
  Sex: Female

DRUGS (1)
  1. BUPROPION. [Suspect]
     Active Substance: BUPROPION
     Indication: PRODUCT USED FOR UNKNOWN INDICATION
     Dosage: INGESTING A 90?DAY SUPPLY OF 450 MG (ESTIMATED TOTAL BUPROPION DOSE 40.5G)
     Route: 048

REACTIONS (6)
  - Pulseless electrical activity [Recovering/Resolving]
  - Overdose [Unknown]
  - Generalised tonic-clonic seizure [Recovering/Resolving]
  - Hypotension [Recovering/Resolving]
  - Ventricular tachycardia [Recovering/Resolving]
  - Torsade de pointes [Recovering/Resolving]
